FAERS Safety Report 16831095 (Version 1)
Quarter: 2019Q3

REPORT INFORMATION
  Report Type: Spontaneous
  Country: ES (occurrence: ES)
  Receive Date: 20190920
  Receipt Date: 20190920
  Transmission Date: 20191005
  Serious: Yes (Other)
  Sender: FDA-Public Use
  Company Number: ES-TEVA-2019-ES-1081056

PATIENT
  Age: 6 Month
  Sex: Female
  Weight: 5.78 kg

DRUGS (4)
  1. OP2455 - OMEPRAZOL FORMULA MAGISTRAL [Concomitant]
     Active Substance: OMEPRAZOLE
     Indication: GASTROOESOPHAGEAL REFLUX DISEASE
     Dosage: 2 MG/ML SOLUTION
     Route: 048
     Dates: start: 20190213, end: 20190321
  2. OP2455 - OMEPRAZOL FORMULA MAGISTRAL [Concomitant]
     Active Substance: OMEPRAZOLE
     Route: 048
     Dates: start: 20190527, end: 20190621
  3. MINOXIDIL. [Suspect]
     Active Substance: MINOXIDIL
     Indication: GASTROOESOPHAGEAL REFLUX DISEASE
     Route: 048
     Dates: start: 20190328, end: 20190527
  4. OP2455 - OMEPRAZOL FORMULA MAGISTRAL [Suspect]
     Active Substance: OMEPRAZOLE
     Indication: GASTROOESOPHAGEAL REFLUX DISEASE
     Dosage: 1 MG/KG DAILY; ?CONCENTRATION 2 MG / ML
     Route: 048
     Dates: start: 20190328, end: 20190527

REACTIONS (2)
  - Product formulation issue [Recovered/Resolved]
  - Hypertrichosis [Unknown]

NARRATIVE: CASE EVENT DATE: 20190408
